FAERS Safety Report 18425306 (Version 1)
Quarter: 2020Q4

REPORT INFORMATION
  Report Type: Spontaneous
  Country: US (occurrence: US)
  Receive Date: 20201026
  Receipt Date: 20201026
  Transmission Date: 20210114
  Serious: No
  Sender: FDA-Public Use
  Company Number: US-AMGEN-USASP2020172548

PATIENT

DRUGS (4)
  1. ERENUMAB [Suspect]
     Active Substance: ERENUMAB
     Indication: MIGRAINE
     Dosage: 70 MILLIGRAM, QMO
     Route: 065
     Dates: start: 2018, end: 2018
  2. ERENUMAB [Suspect]
     Active Substance: ERENUMAB
     Indication: MIGRAINE WITH AURA
  3. ERENUMAB [Suspect]
     Active Substance: ERENUMAB
     Indication: MIGRAINE WITHOUT AURA
  4. ERENUMAB [Suspect]
     Active Substance: ERENUMAB
     Indication: MIGRAINE

REACTIONS (1)
  - Therapeutic product effect incomplete [Unknown]

NARRATIVE: CASE EVENT DATE: 2018
